FAERS Safety Report 6664514-6 (Version None)
Quarter: 2010Q2

REPORT INFORMATION
  Report Type: 
  Country: None (occurrence: None)
  Receive Date: 20100401
  Receipt Date: 20100324
  Transmission Date: 20101027
  Serious: Yes (Hospitalization)
  Sender: FDA-Public Use
  Company Number: ES-PFIZER INC-2010037559

PATIENT
  Age: 70 Year
  Sex: Female

DRUGS (5)
  1. ZARATOR [Suspect]
     Dosage: UNK
  2. LEVOTHYROXINE [Concomitant]
  3. CARVEDILOL [Concomitant]
  4. OMEPRAZOLE [Concomitant]
  5. ACETYLSALICYLIC ACID [Concomitant]

REACTIONS (6)
  - ASTHENIA [None]
  - CHOLURIA [None]
  - DECREASED APPETITE [None]
  - HEPATITIS [None]
  - MYALGIA [None]
  - PYREXIA [None]
